FAERS Safety Report 11255425 (Version 1)
Quarter: 2015Q3

REPORT INFORMATION
  Report Type: Spontaneous
  Country: US (occurrence: US)
  Receive Date: 20150709
  Receipt Date: 20150709
  Transmission Date: 20151125
  Serious: No
  Sender: FDA-Public Use
  Company Number: US-SA-2015SA058349

PATIENT
  Sex: Female

DRUGS (1)
  1. RECOMBINANT HUMAN INSULIN [Suspect]
     Active Substance: INSULIN HUMAN
     Dosage: FORM: POWDER
     Route: 065

REACTIONS (2)
  - Foreign body [Unknown]
  - Device breakage [Unknown]
